FAERS Safety Report 10853053 (Version 1)
Quarter: 2015Q1

REPORT INFORMATION
  Report Type: Spontaneous
  Country: None (occurrence: None)
  Receive Date: 20150218
  Receipt Date: 20150218
  Transmission Date: 20150721
  Serious: No
  Sender: FDA-Public Use
  Company Number: None

PATIENT
  Age: 64 Year
  Sex: Female

DRUGS (1)
  1. NEULASTA [Suspect]
     Active Substance: PEGFILGRASTIM
     Indication: NEUTROPENIA
     Dosage: 6MG, EVERY 21 DAYS
     Route: 058
     Dates: start: 20140422, end: 20150127

REACTIONS (2)
  - Laboratory test normal [None]
  - Therapy cessation [None]

NARRATIVE: CASE EVENT DATE: 20150127
